FAERS Safety Report 4697725-X (Version None)
Quarter: 2005Q2

REPORT INFORMATION
  Report Type: 
  Country: None (occurrence: None)
  Receive Date: 20050621
  Receipt Date: 20050621
  Transmission Date: 20051028
  Serious: Yes (Hospitalization)
  Sender: FDA-Public Use
  Company Number: None

PATIENT
  Age: 49 Year
  Sex: Male
  Weight: 113.3 kg

DRUGS (2)
  1. LITHIUM CARBONATE [Suspect]
     Indication: SCHIZOAFFECTIVE DISORDER
     Dosage: 2 CAP PO Q AM , 3 CAP PO QHS, 2 CAP PO BID
     Route: 048
     Dates: start: 20040619, end: 20041230
  2. LITHIUM CARBONATE [Suspect]
     Indication: SCHIZOAFFECTIVE DISORDER
     Dosage: 2 CAP PO Q AM , 3 CAP PO QHS, 2 CAP PO BID
     Route: 048
     Dates: start: 20041230

REACTIONS (7)
  - COORDINATION ABNORMAL [None]
  - DIARRHOEA [None]
  - DYSKINESIA [None]
  - HYPONATRAEMIA [None]
  - INAPPROPRIATE SCHEDULE OF DRUG ADMINISTRATION [None]
  - RENAL IMPAIRMENT [None]
  - THERAPEUTIC AGENT TOXICITY [None]
